FAERS Safety Report 21128331 (Version 4)
Quarter: 2022Q4

REPORT INFORMATION
  Report Type: Spontaneous
  Country: US (occurrence: US)
  Receive Date: 20220725
  Receipt Date: 20221020
  Transmission Date: 20230113
  Serious: Yes (Hospitalization, Other)
  Sender: FDA-Public Use
  Company Number: US-BRISTOL-MYERS SQUIBB COMPANY-2022-076056

PATIENT
  Age: 68 Year
  Sex: Male
  Weight: 108.41 kg

DRUGS (6)
  1. REVLIMID [Suspect]
     Active Substance: LENALIDOMIDE
     Indication: Plasma cell myeloma
     Dosage: TAKE 1 CAPSULE BY MOUTH ONCE DAILY FOR 3 WEEKS ON, THEN 1 WEEK OFF.
     Route: 048
     Dates: start: 20200313
  2. REVLIMID [Suspect]
     Active Substance: LENALIDOMIDE
     Dosage: 1 PO DAILY ON DAYS 1-21 THEN 7 DAYS OFF
     Route: 048
     Dates: start: 20200315
  3. REVLIMID [Suspect]
     Active Substance: LENALIDOMIDE
     Route: 048
     Dates: start: 20220522
  4. DEXAVET [DEXAMETHASONE] [Concomitant]
  5. AMITRIPTYLINE HYDROCHLORIDE [Concomitant]
     Active Substance: AMITRIPTYLINE HYDROCHLORIDE
  6. PIRALGIN [TRAMADOL] [Concomitant]

REACTIONS (10)
  - Atrial fibrillation [Recovering/Resolving]
  - Serotonin syndrome [Recovering/Resolving]
  - Neutropenia [Not Recovered/Not Resolved]
  - White blood cell count decreased [Recovered/Resolved]
  - Affective disorder [Recovering/Resolving]
  - Agitation [Recovering/Resolving]
  - Stress [Recovering/Resolving]
  - Tremor [Recovering/Resolving]
  - Asthenia [Recovering/Resolving]
  - Red blood cell count decreased [Recovered/Resolved with Sequelae]

NARRATIVE: CASE EVENT DATE: 20220928
